FAERS Safety Report 13830080 (Version 1)
Quarter: 2017Q3

REPORT INFORMATION
  Report Type: Spontaneous
  Country: US (occurrence: US)
  Receive Date: 20170803
  Receipt Date: 20170803
  Transmission Date: 20171127
  Serious: No
  Sender: FDA-Public Use
  Company Number: US-GE HEALTHCARE LIFE SCIENCES-2017CSU002107

PATIENT
  Age: 20 Year
  Sex: Female
  Weight: 65.76 kg

DRUGS (4)
  1. VENTOLIN HFA [Concomitant]
     Active Substance: ALBUTEROL SULFATE
     Indication: PRODUCT USED FOR UNKNOWN INDICATION
     Dosage: 180 UNKNOWN, UNK
     Route: 055
  2. OMNIPAQUE [Suspect]
     Active Substance: IOHEXOL
     Indication: PAIN
     Dosage: 100 ML, SINGLE
     Route: 042
     Dates: start: 20170710, end: 20170710
  3. OMEPRAZOLE. [Concomitant]
     Active Substance: OMEPRAZOLE
     Indication: PRODUCT USED FOR UNKNOWN INDICATION
     Dosage: 40 UNKNOWN, UNK
     Route: 048
  4. BIRTH CONTROL PILL [Concomitant]
     Active Substance: UNSPECIFIED INGREDIENT
     Indication: CONTRACEPTION
     Route: 048

REACTIONS (2)
  - Dizziness [Recovered/Resolved]
  - Pruritus [Recovered/Resolved]

NARRATIVE: CASE EVENT DATE: 20170710
